FAERS Safety Report 4595682-8 (Version None)
Quarter: 2005Q1

REPORT INFORMATION
  Report Type: 
  Country: None (occurrence: None)
  Receive Date: 20050302
  Receipt Date: 20050222
  Transmission Date: 20050727
  Serious: Yes (Other)
  Sender: FDA-Public Use
  Company Number: PHEH2005US02397

PATIENT
  Age: 16 Year
  Sex: Male

DRUGS (3)
  1. TRILEPTAL [Suspect]
     Indication: BIPOLAR I DISORDER
     Dosage: 900 MG, BID
     Route: 048
     Dates: end: 20050201
  2. TRILEPTAL [Suspect]
     Dosage: 1500 MG, QD
     Route: 048
  3. ZITHROMAX [Suspect]
     Indication: PNEUMONIA
     Dosage: UNK, UNK
     Route: 048
     Dates: start: 20041201, end: 20041227

REACTIONS (10)
  - ANOREXIA [None]
  - ASTHENIA [None]
  - BLOOD SODIUM DECREASED [None]
  - CHEST X-RAY ABNORMAL [None]
  - COUGH [None]
  - HALLUCINATION [None]
  - HEPATIC ENZYME INCREASED [None]
  - PNEUMONIA [None]
  - PYREXIA [None]
  - RASH [None]
